FAERS Safety Report 25387612 (Version 1)
Quarter: 2025Q2

REPORT INFORMATION
  Report Type: Report from Study
  Country: US (occurrence: US)
  Receive Date: 20250603
  Receipt Date: 20250603
  Transmission Date: 20250717
  Serious: Yes (Life-Threatening, Hospitalization, Other)
  Sender: BRISTOL-MYERS SQUIBB COMPANY
  Company Number: US-BRISTOL-MYERS SQUIBB COMPANY-2024-070424

PATIENT
  Age: 78 Year
  Sex: Female
  Weight: 72.1 kg

DRUGS (31)
  1. CAMZYOS [Suspect]
     Active Substance: MAVACAMTEN
     Indication: Hypertrophic cardiomyopathy
     Route: 048
     Dates: start: 20230530, end: 20230726
  2. CAMZYOS [Suspect]
     Active Substance: MAVACAMTEN
     Route: 048
     Dates: start: 20230727, end: 20230823
  3. CAMZYOS [Suspect]
     Active Substance: MAVACAMTEN
     Route: 048
     Dates: start: 20230824, end: 20240513
  4. LASIX [Suspect]
     Active Substance: FUROSEMIDE
     Indication: Cardiac failure congestive
     Route: 042
     Dates: start: 20240412, end: 20240412
  5. LASIX [Suspect]
     Active Substance: FUROSEMIDE
     Indication: Acute left ventricular failure
     Dosage: 10 MG PER HOUR
     Route: 041
     Dates: start: 20240412, end: 20240414
  6. LASIX [Suspect]
     Active Substance: FUROSEMIDE
     Route: 042
     Dates: start: 20240406, end: 20240406
  7. METHYLPREDNISOLONE [Concomitant]
     Active Substance: METHYLPREDNISOLONE
     Indication: Interstitial lung disease
     Route: 048
     Dates: start: 20240417
  8. ASPIRIN [Concomitant]
     Active Substance: ASPIRIN
     Indication: Arteriosclerosis coronary artery
     Route: 048
     Dates: start: 20230627
  9. ASPIRIN [Concomitant]
     Active Substance: ASPIRIN
     Route: 048
     Dates: start: 20210709, end: 20230627
  10. BREO ELLIPTA [Concomitant]
     Active Substance: FLUTICASONE FUROATE\VILANTEROL TRIFENATATE
     Indication: Chronic obstructive pulmonary disease
     Dosage: 200MCG-25MCG/DOSE, POWDER METERED
     Route: 055
     Dates: start: 20230726
  11. EZETIMIBE [Concomitant]
     Active Substance: EZETIMIBE
     Indication: Hyperlipidaemia
     Route: 048
     Dates: start: 20230320
  12. HYDROCHLOROTHIAZIDE [Concomitant]
     Active Substance: HYDROCHLOROTHIAZIDE
     Indication: Hypertension
     Route: 048
     Dates: start: 20230320, end: 20231107
  13. HYDROCHLOROTHIAZIDE [Concomitant]
     Active Substance: HYDROCHLOROTHIAZIDE
     Route: 048
     Dates: start: 20231108
  14. LEVOTHYROXINE [Concomitant]
     Active Substance: LEVOTHYROXINE
     Indication: Hypothyroidism
     Route: 048
     Dates: start: 20230320
  15. METOPROLOL SUCCINATE [Concomitant]
     Active Substance: METOPROLOL SUCCINATE
     Indication: Hypertension
     Route: 048
     Dates: start: 20230320, end: 20231107
  16. METOPROLOL SUCCINATE [Concomitant]
     Active Substance: METOPROLOL SUCCINATE
     Dosage: TABLET EXTENDED RELEASE
     Route: 048
     Dates: start: 20231108
  17. OMEPRAZOLE [Concomitant]
     Active Substance: OMEPRAZOLE
     Indication: Gastrooesophageal reflux disease
     Dosage: DELAYED RELEASE TABLET
     Route: 048
     Dates: start: 20230320, end: 20230426
  18. PANTOPRAZOLE [Concomitant]
     Active Substance: PANTOPRAZOLE
     Indication: Gastrooesophageal reflux disease
     Dosage: DELAYED RELEASE TABLET
     Route: 048
     Dates: start: 20230407
  19. PLAVIX [Concomitant]
     Active Substance: CLOPIDOGREL BISULFATE
     Indication: Arrhythmia
     Route: 048
     Dates: start: 20230407
  20. BENZONATATE [Concomitant]
     Active Substance: BENZONATATE
     Indication: Product used for unknown indication
     Route: 048
     Dates: start: 20230323, end: 20230509
  21. RANOLAZINE [Concomitant]
     Active Substance: RANOLAZINE
     Indication: Angina pectoris
     Dosage: EXTENDED RELEASE
     Route: 048
     Dates: start: 20230323, end: 20230426
  22. ALBUTEROL SULFATE [Concomitant]
     Active Substance: ALBUTEROL SULFATE
     Indication: Chronic obstructive pulmonary disease
     Route: 055
     Dates: start: 20231222, end: 20231226
  23. PREDNISONE [Concomitant]
     Active Substance: PREDNISONE
     Indication: Chronic obstructive pulmonary disease
     Route: 048
     Dates: start: 20231222, end: 20231226
  24. METHYLPREDNISOLONE [Concomitant]
     Active Substance: METHYLPREDNISOLONE
     Indication: Chronic obstructive pulmonary disease
     Route: 042
     Dates: start: 20231222, end: 20231222
  25. DOXYCYCLINE [Concomitant]
     Active Substance: DOXYCYCLINE
     Indication: Chronic obstructive pulmonary disease
     Route: 048
     Dates: start: 20231222, end: 20231226
  26. IRON SUCROSE [Concomitant]
     Active Substance: IRON SUCROSE
     Indication: Iron deficiency anaemia
     Dosage: ONCE DAY FOR 3 DAYS
     Route: 042
     Dates: start: 20231222, end: 20231225
  27. BUDESONIDE [Concomitant]
     Active Substance: BUDESONIDE
     Indication: Interstitial lung disease
     Route: 055
     Dates: start: 20240415, end: 20240417
  28. ALBUTEROL\IPRATROPIUM [Concomitant]
     Active Substance: ALBUTEROL\IPRATROPIUM
     Indication: Interstitial lung disease
     Route: 055
     Dates: start: 20240415, end: 20240417
  29. FLUTICASONE FUROATE [Concomitant]
     Active Substance: FLUTICASONE FUROATE
     Indication: Chronic obstructive pulmonary disease
     Route: 055
     Dates: start: 20230726
  30. VILANTEROL [Concomitant]
     Active Substance: VILANTEROL
     Indication: Chronic obstructive pulmonary disease
     Route: 048
     Dates: start: 20230726
  31. IPRATROPIUM BROMIDE [Concomitant]
     Active Substance: IPRATROPIUM BROMIDE
     Indication: Chronic obstructive pulmonary disease
     Route: 055
     Dates: start: 20231222, end: 20231226

REACTIONS (21)
  - Cardiac failure congestive [Recovered/Resolved]
  - Chronic obstructive pulmonary disease [Recovered/Resolved]
  - Acute kidney injury [Recovered/Resolved]
  - Pneumonia [Recovered/Resolved]
  - Cardiomegaly [Unknown]
  - Pulmonary venous hypertension [Unknown]
  - Atelectasis [Unknown]
  - Pleural effusion [Unknown]
  - Mitral valve incompetence [Recovered/Resolved]
  - Mitral valve stenosis [Unknown]
  - Pulmonary hypertension [Unknown]
  - Splenic artery aneurysm [Unknown]
  - Renal artery stenosis [Unknown]
  - Iliac artery dissection [Unknown]
  - Oedema [Unknown]
  - Polyuria [Unknown]
  - Hypotension [Unknown]
  - Hyponatraemia [Unknown]
  - Lung opacity [Unknown]
  - Anaemia [Recovered/Resolved]
  - Acute respiratory failure [Recovered/Resolved]

NARRATIVE: CASE EVENT DATE: 20240330
